FAERS Safety Report 5853990-4 (Version None)
Quarter: 2008Q3

REPORT INFORMATION
  Report Type: 
  Country: None (occurrence: None)
  Receive Date: 20080822
  Receipt Date: 20080814
  Transmission Date: 20090109
  Serious: Yes (Other)
  Sender: FDA-Public Use
  Company Number: US-KINGPHARMUSA00001-K200800973

PATIENT

DRUGS (1)
  1. EPIPEN JR. [Suspect]
     Dosage: .15 MG, SINGLE
     Dates: start: 20080814, end: 20080814

REACTIONS (4)
  - ACCIDENTAL EXPOSURE [None]
  - EXPIRED DRUG ADMINISTERED [None]
  - INJECTION SITE DISCOLOURATION [None]
  - INJECTION SITE PALLOR [None]
